FAERS Safety Report 12359735 (Version 4)
Quarter: 2017Q1

REPORT INFORMATION
  Report Type: Report from Study
  Country: US (occurrence: US)
  Receive Date: 20160512
  Receipt Date: 20170112
  Transmission Date: 20170428
  Serious: Yes (Other)
  Sender: FDA-Public Use
  Company Number: US-JNJFOC-20160504184

PATIENT
  Sex: Male
  Weight: 78.93 kg

DRUGS (8)
  1. FISH OIL [Concomitant]
     Active Substance: FISH OIL
     Route: 065
  2. VITA B12 [Concomitant]
     Route: 065
  3. REMICADE [Suspect]
     Active Substance: INFLIXIMAB
     Indication: COLITIS ULCERATIVE
     Dosage: ^EVERY 6-8 WEEKS ^
     Route: 042
     Dates: end: 2016
  4. REMICADE [Suspect]
     Active Substance: INFLIXIMAB
     Indication: COLITIS ULCERATIVE
     Route: 042
     Dates: start: 201611
  5. REMICADE [Suspect]
     Active Substance: INFLIXIMAB
     Indication: COLITIS ULCERATIVE
     Route: 042
     Dates: start: 2001
  6. MERCAPTOPURINE. [Concomitant]
     Active Substance: MERCAPTOPURINE
     Route: 065
  7. REMICADE [Suspect]
     Active Substance: INFLIXIMAB
     Indication: COLITIS ULCERATIVE
     Route: 042
     Dates: end: 201509
  8. VITAMINE C [Concomitant]
     Active Substance: ASCORBIC ACID
     Route: 065

REACTIONS (6)
  - Drug ineffective [Recovered/Resolved]
  - Drug specific antibody present [Unknown]
  - Product use issue [Unknown]
  - Off label use [Unknown]
  - Prostate cancer [Recovered/Resolved]
  - Colitis ulcerative [Not Recovered/Not Resolved]

NARRATIVE: CASE EVENT DATE: 2001
